FAERS Safety Report 16775725 (Version 1)
Quarter: 2019Q4

REPORT INFORMATION
  Report Type: Spontaneous
  Country: US (occurrence: US)
  Receive Date: 20190905
  Receipt Date: 20190905
  Transmission Date: 20200122
  Serious: No
  Sender: FDA-Public Use
  Company Number: None

PATIENT
  Age: 24 Year
  Sex: Male

DRUGS (2)
  1. HUMIRA [Suspect]
     Active Substance: ADALIMUMAB
     Indication: PSORIASIS
     Dosage: ?          OTHER FREQUENCY:EVERY OTHER WEEK;?
     Route: 058
     Dates: start: 20190701
  2. HUMIRA [Concomitant]
     Active Substance: ADALIMUMAB
     Dates: start: 20190701

REACTIONS (2)
  - Injection site pain [None]
  - Needle issue [None]

NARRATIVE: CASE EVENT DATE: 20190812
